FAERS Safety Report 8284159-4 (Version None)
Quarter: 2012Q2

REPORT INFORMATION
  Report Type: 
  Country: None (occurrence: None)
  Receive Date: 20120413
  Receipt Date: 20120126
  Transmission Date: 20120825
  Serious: No
  Sender: FDA-Public Use
  Company Number: US-ASTRAZENECA-2012SE05488

PATIENT
  Age: 90 Year
  Sex: Male
  Weight: 74.8 kg

DRUGS (9)
  1. PLAVIX [Concomitant]
  2. COREG [Concomitant]
  3. CHILDRENS ASPIRIN [Concomitant]
  4. ZOCOR [Concomitant]
  5. GLIPOZIDE [Concomitant]
  6. NEXIUM [Suspect]
     Indication: FLATULENCE
     Route: 048
  7. TRADEJENTA [Concomitant]
  8. ZESTRIL [Concomitant]
  9. IMODIUM [Concomitant]

REACTIONS (3)
  - CARDIAC DISORDER [None]
  - DIARRHOEA [None]
  - OFF LABEL USE [None]
